FAERS Safety Report 25445587 (Version 2)
Quarter: 2025Q2

REPORT INFORMATION
  Report Type: Spontaneous
  Country: US (occurrence: US)
  Receive Date: 20250617
  Receipt Date: 20250620
  Transmission Date: 20250717
  Serious: No
  Sender: PFIZER
  Company Number: US-PFIZER INC-202500120237

PATIENT
  Age: 79 Year
  Sex: Male

DRUGS (1)
  1. GENOTROPIN [Suspect]
     Active Substance: SOMATROPIN
     Dosage: 0.3 MG, AT NIGHT

REACTIONS (3)
  - Gait disturbance [Unknown]
  - Drug dose omission by device [Unknown]
  - Device delivery system issue [Unknown]
